FAERS Safety Report 9843717 (Version 1)
Quarter: 2014Q1

REPORT INFORMATION
  Report Type: Spontaneous
  Country: US (occurrence: US)
  Receive Date: 20140126
  Receipt Date: 20140126
  Transmission Date: 20141002
  Serious: No
  Sender: FDA-Public Use
  Company Number: US-009507513-1401USA010333

PATIENT
  Age: 58 Year
  Sex: Female

DRUGS (1)
  1. ASMANEX TWISTHALER [Suspect]
     Indication: BRONCHITIS
     Dosage: 220 MICROGRAM, HS, 1 INHALATION FOR 30 DAYS
     Route: 055
     Dates: start: 20140117

REACTIONS (2)
  - Product taste abnormal [Unknown]
  - Wrong technique in drug usage process [Unknown]
